FAERS Safety Report 4870784-7 (Version None)
Quarter: 2006Q1

REPORT INFORMATION
  Report Type: 
  Country: None (occurrence: None)
  Receive Date: 20060103
  Receipt Date: 20050914
  Transmission Date: 20060701
  Serious: Yes (Hospitalization)
  Sender: FDA-Public Use
  Company Number: US-MERCK-0509USA02125

PATIENT
  Age: 52 Year
  Sex: Male

DRUGS (8)
  1. VIOXX [Suspect]
     Indication: GOUT
     Route: 048
     Dates: start: 20020101
  2. PAXIL [Concomitant]
     Indication: BIPOLAR DISORDER
     Route: 065
  3. PAXIL [Concomitant]
     Route: 065
  4. [THERAPY UNSPECIFIED] [Concomitant]
     Indication: BIPOLAR DISORDER
     Route: 065
  5. VALPROIC ACID [Concomitant]
     Route: 065
  6. VALPROIC ACID [Concomitant]
     Route: 065
  7. NPH INSULIN [Concomitant]
     Route: 058
  8. EFFEXOR [Concomitant]
     Route: 065

REACTIONS (15)
  - ARTERIOSCLEROSIS CORONARY ARTERY [None]
  - CARDIOMYOPATHY [None]
  - CAROTID ARTERY STENOSIS [None]
  - CEREBRAL ARTERY OCCLUSION [None]
  - CEREBROVASCULAR ACCIDENT [None]
  - CONFUSIONAL STATE [None]
  - EMOTIONAL DISTRESS [None]
  - FATIGUE [None]
  - GASTROOESOPHAGEAL REFLUX DISEASE [None]
  - MAJOR DEPRESSION [None]
  - MEMORY IMPAIRMENT [None]
  - OSTEOARTHRITIS [None]
  - SELF ESTEEM DECREASED [None]
  - SOMNOLENCE [None]
  - SUICIDAL IDEATION [None]
